FAERS Safety Report 19026541 (Version 1)
Quarter: 2021Q1

REPORT INFORMATION
  Report Type: Spontaneous
  Country: US (occurrence: US)
  Receive Date: 20210318
  Receipt Date: 20210318
  Transmission Date: 20210420
  Serious: Yes (Other)
  Sender: FDA-Public Use
  Company Number: US-PFIZER INC-2021263825

PATIENT
  Age: 46 Year
  Sex: Female

DRUGS (1)
  1. TALAZOPARIB. [Suspect]
     Active Substance: TALAZOPARIB
     Dosage: UNK
     Dates: start: 201811, end: 201911

REACTIONS (9)
  - Fatigue [Recovering/Resolving]
  - Neoplasm progression [Unknown]
  - Blood test abnormal [Recovering/Resolving]
  - Loss of consciousness [Recovering/Resolving]
  - Joint swelling [Recovering/Resolving]
  - Tenderness [Recovering/Resolving]
  - Anaemia [Recovering/Resolving]
  - Musculoskeletal discomfort [Recovering/Resolving]
  - Lymphadenopathy [Recovering/Resolving]

NARRATIVE: CASE EVENT DATE: 201901
